FAERS Safety Report 4673790-0 (Version None)
Quarter: 2005Q2

REPORT INFORMATION
  Report Type: 
  Country: None (occurrence: None)
  Receive Date: 20050524
  Receipt Date: 20050513
  Transmission Date: 20051028
  Serious: Yes (Other)
  Sender: FDA-Public Use
  Company Number: HQWYE746416MAY05

PATIENT
  Age: 58 Year
  Sex: Female

DRUGS (3)
  1. MINOCYCLINE HCL [Suspect]
     Indication: PNEUMONIA
     Dosage: 200 MG/DAY, INTRAVENOUS DRIP
     Route: 041
     Dates: start: 20050510, end: 20050512
  2. OMEPRAZOLE [Concomitant]
  3. MAXIPIME [Concomitant]

REACTIONS (4)
  - ALANINE AMINOTRANSFERASE INCREASED [None]
  - ASPARTATE AMINOTRANSFERASE INCREASED [None]
  - HAEMODIALYSIS [None]
  - LIVER DISORDER [None]
